FAERS Safety Report 8787005 (Version 3)
Quarter: 2012Q4

REPORT INFORMATION
  Report Type: 
  Country: AU (occurrence: AU)
  Receive Date: 20120914
  Receipt Date: 20121009
  Transmission Date: 20130627
  Serious: Yes (Other)
  Sender: FDA-Public Use
  Company Number: PHHY2012AU079586

PATIENT
  Age: 41 Year
  Sex: Female

DRUGS (2)
  1. CLOZARIL [Suspect]
     Indication: SCHIZOPHRENIA
     Dosage: 400 mg
     Route: 048
     Dates: start: 20100212, end: 20120905
  2. CLOZARIL [Suspect]
     Dosage: UNK UKN, UNK
     Dates: start: 20120910

REACTIONS (4)
  - Psychotic disorder [Recovered/Resolved]
  - Iron deficiency anaemia [Recovering/Resolving]
  - Neutropenia [Recovering/Resolving]
  - White blood cell count decreased [Recovering/Resolving]
